FAERS Safety Report 8823012 (Version 1)
Quarter: 2012Q4

REPORT INFORMATION
  Report Type: 
  Country: US (occurrence: US)
  Receive Date: 20121003
  Receipt Date: 20121003
  Transmission Date: 20130627
  Serious: Yes (Hospitalization, Other)
  Sender: FDA-Public Use
  Company Number: US-ROCHE-1131340

PATIENT
  Sex: Female

DRUGS (10)
  1. XELODA [Suspect]
     Indication: BREAST CANCER FEMALE
     Route: 065
  2. AVASTIN [Suspect]
     Indication: BREAST CANCER FEMALE
     Route: 065
     Dates: start: 20071009
  3. AVASTIN [Suspect]
     Route: 065
     Dates: start: 20071112
  4. AVASTIN [Suspect]
     Route: 065
     Dates: start: 20071220
  5. FEMARA [Concomitant]
  6. TAMOXIFEN [Concomitant]
  7. TAXOL [Concomitant]
  8. CYCLOPHOSPHAMIDE [Concomitant]
  9. METHOTREXATE [Concomitant]
  10. FLUOROURACIL [Concomitant]

REACTIONS (4)
  - Diabetes mellitus [Unknown]
  - Cerebrovascular accident [Unknown]
  - Disease progression [Unknown]
  - Fall [Unknown]
